FAERS Safety Report 7600422-1 (Version None)
Quarter: 2011Q2

REPORT INFORMATION
  Report Type: 
  Country: None (occurrence: None)
  Receive Date: 20110629
  Receipt Date: 20110615
  Transmission Date: 20111010
  Serious: Yes (Other)
  Sender: FDA-Public Use
  Company Number: AUR-APL-2011-03575

PATIENT
  Age: 68 Year
  Sex: Female

DRUGS (6)
  1. LANSOPRAZOLE [Concomitant]
  2. METFORMIN HCL [Concomitant]
  3. LORAZEPAM [Concomitant]
  4. CRESTOR [Concomitant]
  5. TERBINAFINE HCL [Suspect]
     Indication: PRODUCT USED FOR UNKNOWN INDICATION
     Dates: start: 20110514, end: 20110525
  6. GAVISCON [Concomitant]

REACTIONS (3)
  - ERYTHEMA [None]
  - SKIN BURNING SENSATION [None]
  - GENERALISED OEDEMA [None]
